FAERS Safety Report 5413005-9 (Version None)
Quarter: 2007Q3

REPORT INFORMATION
  Report Type: 
  Country: None (occurrence: None)
  Receive Date: 20070813
  Receipt Date: 20070801
  Transmission Date: 20080115
  Serious: Yes (Other)
  Sender: FDA-Public Use
  Company Number: NO-PFIZER INC-2007064795

PATIENT
  Age: 40 Year
  Sex: Female

DRUGS (3)
  1. LYRICA [Suspect]
     Indication: PAIN
     Route: 048
  2. PARALGIN FORTE [Concomitant]
     Route: 048
  3. SOBRIL [Concomitant]
     Route: 048

REACTIONS (1)
  - BLOOD CREATININE INCREASED [None]
